FAERS Safety Report 9314122 (Version 2)
Quarter: 2013Q3

REPORT INFORMATION
  Report Type: Spontaneous
  Country: AU (occurrence: AU)
  Receive Date: 20130529
  Receipt Date: 20130809
  Transmission Date: 20140515
  Serious: Yes (Other)
  Sender: FDA-Public Use
  Company Number: AU-NOVOPROD-378516

PATIENT
  Age: 16 Year
  Sex: Female
  Weight: 80 kg

DRUGS (4)
  1. NOVORAPID [Suspect]
     Indication: TYPE 1 DIABETES MELLITUS
     Dosage: 12 UNITS IN MORNING
     Route: 065
  2. NOVORAPID [Suspect]
     Dosage: 12 UNITS PRE DINNER AND 12 UNITS PRE BREAKFAST
     Route: 065
     Dates: start: 20130501, end: 20130502
  3. NOVORAPID [Suspect]
     Dosage: UNK
     Route: 065
  4. NOVOMIX 30 FLEXPEN [Suspect]
     Indication: TYPE 1 DIABETES MELLITUS
     Dosage: WAS ORDERED 12 UNITS TWICE DAILY
     Route: 065

REACTIONS (5)
  - Drug prescribing error [Unknown]
  - Ketosis [Recovered/Resolved]
  - Wrong drug administered [Unknown]
  - Treatment noncompliance [Unknown]
  - Injection site mass [Unknown]
